FAERS Safety Report 8207580-9 (Version None)
Quarter: 2012Q1

REPORT INFORMATION
  Report Type: 
  Country: None (occurrence: None)
  Receive Date: 20120313
  Receipt Date: 20120313
  Transmission Date: 20120608
  Serious: Yes (Death)
  Sender: FDA-Public Use
  Company Number: None

PATIENT
  Age: 81 Year
  Sex: Male

DRUGS (19)
  1. DEXAMETHASONE [Concomitant]
  2. TEMAZEPAM [Concomitant]
  3. PROCHLORPERAZINE [Concomitant]
  4. NORCO [Concomitant]
  5. MAGNESIUM [Concomitant]
  6. TRAZODONE HCL [Concomitant]
  7. REVLIMID [Suspect]
  8. ASPIRIN [Concomitant]
  9. MEGESTROL ACETATE [Concomitant]
  10. MORPHINE [Concomitant]
  11. FUROSEMIDE [Concomitant]
  12. FLUTICASONE PROPIONATE [Concomitant]
  13. FAMOTIDINE [Concomitant]
  14. ALBUTEROL [Concomitant]
  15. POTASSIUM [Concomitant]
  16. REVLIMID [Suspect]
     Indication: MULTIPLE MYELOMA
     Dosage: 25 MG DAILY X 21/28 DAYS BY MOUTH
     Route: 048
     Dates: start: 20111201, end: 20120201
  17. TERAZOSIN HCL [Concomitant]
  18. LEVOTHYROXINE SODIUM [Concomitant]
  19. COMBIVENT [Concomitant]

REACTIONS (3)
  - MENTAL STATUS CHANGES [None]
  - FALL [None]
  - HYPOPHAGIA [None]
